FAERS Safety Report 10296916 (Version 2)
Quarter: 2014Q3

REPORT INFORMATION
  Report Type: Spontaneous
  Country: US (occurrence: None)
  Receive Date: 20120817
  Receipt Date: 20140815
  Transmission Date: 20150326
  Serious: Yes (Other)
  Sender: FDA-Public Use
  Company Number: ADR-2011-11851

PATIENT
  Age: 25 Year
  Sex: Female

DRUGS (2)
  1. BACLOFEN. [Suspect]
     Active Substance: BACLOFEN
     Indication: MUSCLE SPASTICITY
     Dosage: FLEX
  2. BACLOFEN. [Suspect]
     Active Substance: BACLOFEN
     Dosage: FLEX

REACTIONS (2)
  - Implant site pain [None]
  - Medical device discomfort [None]
